FAERS Safety Report 6356400-6 (Version None)
Quarter: 2009Q3

REPORT INFORMATION
  Report Type: 
  Country: None (occurrence: None)
  Receive Date: 20090915
  Receipt Date: 20090911
  Transmission Date: 20100115
  Serious: Yes (Death)
  Sender: FDA-Public Use
  Company Number: JP-AVENTIS-200912576JP

PATIENT
  Age: 74 Year
  Sex: Male

DRUGS (1)
  1. TAXOTERE [Suspect]
     Route: 041
     Dates: start: 20090902, end: 20090902

REACTIONS (2)
  - BLOOD PRESSURE DECREASED [None]
  - SHOCK [None]
